FAERS Safety Report 8354596-8 (Version None)
Quarter: 2012Q2

REPORT INFORMATION
  Report Type: 
  Country: None (occurrence: None)
  Receive Date: 20120511
  Receipt Date: 20120509
  Transmission Date: 20120825
  Serious: Yes (Hospitalization, Other)
  Sender: FDA-Public Use
  Company Number: US-MERCK-1202USA03875

PATIENT
  Age: 78 Year
  Sex: Female

DRUGS (6)
  1. SYNTHROID [Concomitant]
     Indication: HYPOTHYROIDISM
     Route: 065
  2. ALENDRONATE SODIUM [Suspect]
     Indication: OSTEOPENIA
     Route: 048
     Dates: start: 20100101, end: 20100501
  3. ALENDRONATE SODIUM [Suspect]
     Indication: OSTEOPOROSIS
     Route: 048
     Dates: start: 20100101, end: 20100501
  4. FOSAMAX [Suspect]
     Indication: OSTEOPENIA
     Route: 048
     Dates: start: 20020101, end: 20100101
  5. FOSAMAX [Suspect]
     Indication: OSTEOPOROSIS
     Route: 048
     Dates: start: 20020101, end: 20100101
  6. LOTREL [Concomitant]
     Indication: HYPERTENSION
     Route: 065

REACTIONS (9)
  - UTERINE DISORDER [None]
  - OSTEOARTHRITIS [None]
  - BURSITIS [None]
  - GALLBLADDER DISORDER [None]
  - ARTHRITIS [None]
  - FEMUR FRACTURE [None]
  - DEVICE FAILURE [None]
  - DIABETES MELLITUS [None]
  - TENDONITIS [None]
